FAERS Safety Report 18367642 (Version 1)
Quarter: 2020Q4

REPORT INFORMATION
  Report Type: Not Available
  Country: US (occurrence: US)
  Receive Date: 20201009
  Receipt Date: 20201009
  Transmission Date: 20210114
  Serious: No
  Sender: FDA-Public Use
  Company Number: US-C B FLEET CO INC-201910-US-003528

PATIENT
  Age: 78 Year
  Sex: Female

DRUGS (2)
  1. ASPRIN [Concomitant]
     Active Substance: ASPIRIN
  2. MONISTAT 3 3-DAY PRE-FILLED APPLICATORS [Suspect]
     Active Substance: MICONAZOLE NITRATE
     Indication: FUNGAL INFECTION
     Dosage: USED ONE LAST NIGHT
     Route: 067
     Dates: start: 20191028

REACTIONS (2)
  - Vaginal haemorrhage [Not Recovered/Not Resolved]
  - Expired product administered [None]
